FAERS Safety Report 12402183 (Version 1)
Quarter: 2016Q2

REPORT INFORMATION
  Report Type: Spontaneous
  Country: FR (occurrence: FR)
  Receive Date: 20160525
  Receipt Date: 20160525
  Transmission Date: 20160815
  Serious: Yes (Death)
  Sender: FDA-Public Use
  Company Number: FR-SA-2016SA098776

PATIENT
  Age: 99 Year
  Sex: Female

DRUGS (10)
  1. CARTEOL [Suspect]
     Active Substance: CARTEOLOL
     Dosage: FORM:DROPS
     Route: 047
  2. KARDEGIC [Suspect]
     Active Substance: ASPIRIN LYSINE
     Route: 048
  3. DIFFU K [Suspect]
     Active Substance: POTASSIUM CHLORIDE
     Route: 048
  4. NITRIDERM [Suspect]
     Active Substance: NITROGLYCERIN
     Route: 062
  5. ALDACTONE [Suspect]
     Active Substance: SPIRONOLACTONE
     Dosage: STRENGTH: 25 MG
     Route: 048
  6. LEXOMIL [Suspect]
     Active Substance: BROMAZEPAM
     Route: 048
  7. COVERSYL [Suspect]
     Active Substance: PERINDOPRIL
     Dosage: STRENGTH: 2.5 MG
     Route: 048
  8. METEOSPASMYL [Suspect]
     Active Substance: ALVERINE CITRATE\DIMETHICONE
     Route: 048
  9. LASILIX [Suspect]
     Active Substance: FUROSEMIDE
     Dosage: 1 TABLET OF 40MG IN THE MORNING ; 1/2 TABLET OF 20G IN THE NOON
     Route: 048
  10. PAROXETINE HYDROCHLORIDE. [Suspect]
     Active Substance: PAROXETINE HYDROCHLORIDE
     Route: 048

REACTIONS (2)
  - Hyponatraemia [Fatal]
  - Hypoosmolar state [Fatal]

NARRATIVE: CASE EVENT DATE: 20160502
